FAERS Safety Report 4551700-4 (Version None)
Quarter: 2005Q1

REPORT INFORMATION
  Report Type: 
  Country: None (occurrence: None)
  Receive Date: 20050111
  Receipt Date: 20050103
  Transmission Date: 20050727
  Serious: Yes (Other)
  Sender: FDA-Public Use
  Company Number: S04-USA-07843-01

PATIENT
  Sex: Female

DRUGS (2)
  1. NAMENDA [Suspect]
  2. ZYPREXA [Suspect]

REACTIONS (1)
  - PARKINSON'S DISEASE [None]
